FAERS Safety Report 7362221-8 (Version None)
Quarter: 2011Q1

REPORT INFORMATION
  Report Type: 
  Country: None (occurrence: None)
  Receive Date: 20110318
  Receipt Date: 20110314
  Transmission Date: 20110831
  Serious: Yes (Other)
  Sender: FDA-Public Use
  Company Number: SE-PFIZER INC-2010176961

PATIENT
  Age: 65 Year
  Sex: Female
  Weight: 89 kg

DRUGS (3)
  1. PREGABALIN [Suspect]
     Dosage: 75 MG, UNK
     Dates: start: 20101217, end: 20101220
  2. PREGABALIN [Suspect]
     Indication: RESTLESS LEGS SYNDROME
     Dosage: 300 MG, UNK
     Dates: start: 20091221, end: 20101214
  3. PREGABALIN [Suspect]
     Dosage: 150 MG, UNK
     Dates: start: 20101214, end: 20101216

REACTIONS (1)
  - WITHDRAWAL SYNDROME [None]
